FAERS Safety Report 8118574-6 (Version None)
Quarter: 2012Q1

REPORT INFORMATION
  Report Type: 
  Country: None (occurrence: None)
  Receive Date: 20120202
  Receipt Date: 20120119
  Transmission Date: 20120608
  Serious: Yes (Death, Hospitalization, Disabling, Other)
  Sender: FDA-Public Use
  Company Number: 2012MA000989

PATIENT
  Sex: Female

DRUGS (11)
  1. HYDROCHLOROTHIAZIDE [Concomitant]
  2. ALTACE [Concomitant]
  3. LEVOTHYROXINE SODIUM [Concomitant]
  4. DIGOXIN [Suspect]
     Dosage: 0.125 MG; QD; PO
     Route: 048
     Dates: end: 20080331
  5. NOVOLIN 70/30 [Concomitant]
  6. VITAMIN B-12 [Concomitant]
  7. METOCLOPRAMIDE [Concomitant]
  8. TRIAMTERENE [Concomitant]
  9. STALVEO [Concomitant]
  10. NEXIUM [Concomitant]
  11. SINEMET [Concomitant]

REACTIONS (38)
  - SCIATICA [None]
  - NEPHROLITHIASIS [None]
  - BRADYCARDIA [None]
  - MITRAL VALVE INCOMPETENCE [None]
  - ANXIETY [None]
  - NAUSEA [None]
  - VOMITING [None]
  - BLOOD THYROID STIMULATING HORMONE [None]
  - TRICUSPID VALVE INCOMPETENCE [None]
  - CATARACT [None]
  - DIABETES MELLITUS [None]
  - ATRIAL FIBRILLATION [None]
  - HYPERLIPIDAEMIA [None]
  - DIZZINESS [None]
  - AORTIC STENOSIS [None]
  - DEFORMITY [None]
  - RENAL FAILURE [None]
  - GASTROOESOPHAGEAL REFLUX DISEASE [None]
  - FAILURE TO THRIVE [None]
  - EMPHYSEMA [None]
  - ECHOCARDIOGRAM [None]
  - HYPOTHYROIDISM [None]
  - PARKINSON'S DISEASE [None]
  - SYNCOPE [None]
  - TOXICITY TO VARIOUS AGENTS [None]
  - ASTHENIA [None]
  - HYPOTENSION [None]
  - DEHYDRATION [None]
  - RENAL FAILURE ACUTE [None]
  - LEFT VENTRICULAR HYPERTROPHY [None]
  - PERICARDIAL EFFUSION [None]
  - PAIN [None]
  - DIARRHOEA [None]
  - MYOCARDIAL INFARCTION [None]
  - BACK PAIN [None]
  - DECREASED APPETITE [None]
  - SCOLIOSIS [None]
  - CHRONIC OBSTRUCTIVE PULMONARY DISEASE [None]
